FAERS Safety Report 25976304 (Version 1)
Quarter: 2025Q4

REPORT INFORMATION
  Report Type: Spontaneous
  Country: EU (occurrence: EU)
  Receive Date: 20251029
  Receipt Date: 20251029
  Transmission Date: 20260117
  Serious: Yes (Hospitalization)
  Sender: MYLAN
  Company Number: None

PATIENT
  Age: 68 Year
  Sex: Female
  Weight: 64 kg

DRUGS (112)
  1. CETIRIZINE [Suspect]
     Active Substance: CETIRIZINE HYDROCHLORIDE
     Indication: Product used for unknown indication
     Dosage: UNK
  2. CETIRIZINE [Suspect]
     Active Substance: CETIRIZINE HYDROCHLORIDE
     Dosage: UNK
     Route: 065
  3. CETIRIZINE [Suspect]
     Active Substance: CETIRIZINE HYDROCHLORIDE
     Dosage: UNK
     Route: 065
  4. CETIRIZINE [Suspect]
     Active Substance: CETIRIZINE HYDROCHLORIDE
     Dosage: UNK
  5. CEFTRIAXONE [Suspect]
     Active Substance: CEFTRIAXONE
     Indication: Antibiotic prophylaxis
     Dosage: 1 GRAM, 1 DOSE ONLY
     Dates: start: 20250924, end: 20250924
  6. CEFTRIAXONE [Suspect]
     Active Substance: CEFTRIAXONE
     Dosage: 1 GRAM, 1 DOSE ONLY
     Route: 065
     Dates: start: 20250924, end: 20250924
  7. CEFTRIAXONE [Suspect]
     Active Substance: CEFTRIAXONE
     Dosage: 1 GRAM, 1 DOSE ONLY
     Route: 065
     Dates: start: 20250924, end: 20250924
  8. CEFTRIAXONE [Suspect]
     Active Substance: CEFTRIAXONE
     Dosage: 1 GRAM, 1 DOSE ONLY
     Dates: start: 20250924, end: 20250924
  9. ROCURONIUM [Suspect]
     Active Substance: ROCURONIUM BROMIDE
     Indication: Anaesthesia
     Dosage: 60 MILLIGRAM
     Dates: start: 20250924, end: 20250924
  10. ROCURONIUM [Suspect]
     Active Substance: ROCURONIUM BROMIDE
     Dosage: 60 MILLIGRAM
     Route: 042
     Dates: start: 20250924, end: 20250924
  11. ROCURONIUM [Suspect]
     Active Substance: ROCURONIUM BROMIDE
     Dosage: 60 MILLIGRAM
     Route: 042
     Dates: start: 20250924, end: 20250924
  12. ROCURONIUM [Suspect]
     Active Substance: ROCURONIUM BROMIDE
     Dosage: 60 MILLIGRAM
     Dates: start: 20250924, end: 20250924
  13. DEXAMETHASONE [Suspect]
     Active Substance: DEXAMETHASONE
     Indication: Product used for unknown indication
     Dosage: 8 MILLIGRAM
     Dates: start: 20250924, end: 20250924
  14. DEXAMETHASONE [Suspect]
     Active Substance: DEXAMETHASONE
     Dosage: 8 MILLIGRAM
     Route: 042
     Dates: start: 20250924, end: 20250924
  15. DEXAMETHASONE [Suspect]
     Active Substance: DEXAMETHASONE
     Dosage: 8 MILLIGRAM
     Route: 042
     Dates: start: 20250924, end: 20250924
  16. DEXAMETHASONE [Suspect]
     Active Substance: DEXAMETHASONE
     Dosage: 8 MILLIGRAM
     Dates: start: 20250924, end: 20250924
  17. PROPOFOL [Suspect]
     Active Substance: PROPOFOL
     Indication: Anaesthesia
     Dosage: 150 MILLIGRAM
     Dates: start: 20250924, end: 20250924
  18. PROPOFOL [Suspect]
     Active Substance: PROPOFOL
     Dosage: 150 MILLIGRAM
     Route: 042
     Dates: start: 20250924, end: 20250924
  19. PROPOFOL [Suspect]
     Active Substance: PROPOFOL
     Dosage: 150 MILLIGRAM
     Route: 042
     Dates: start: 20250924, end: 20250924
  20. PROPOFOL [Suspect]
     Active Substance: PROPOFOL
     Dosage: 150 MILLIGRAM
     Dates: start: 20250924, end: 20250924
  21. REMIFENTANIL [Suspect]
     Active Substance: REMIFENTANIL
     Indication: Anaesthesia
     Dosage: UNK
     Dates: start: 20250924, end: 20250924
  22. REMIFENTANIL [Suspect]
     Active Substance: REMIFENTANIL
     Dosage: UNK
     Route: 042
     Dates: start: 20250924, end: 20250924
  23. REMIFENTANIL [Suspect]
     Active Substance: REMIFENTANIL
     Dosage: UNK
     Route: 042
     Dates: start: 20250924, end: 20250924
  24. REMIFENTANIL [Suspect]
     Active Substance: REMIFENTANIL
     Dosage: UNK
     Dates: start: 20250924, end: 20250924
  25. NEFOPAM [Suspect]
     Active Substance: NEFOPAM
     Indication: Procedural pain
     Dosage: 20 MILLIGRAM
     Dates: start: 20250924, end: 20250924
  26. NEFOPAM [Suspect]
     Active Substance: NEFOPAM
     Dosage: 20 MILLIGRAM
     Route: 042
     Dates: start: 20250924, end: 20250924
  27. NEFOPAM [Suspect]
     Active Substance: NEFOPAM
     Dosage: 20 MILLIGRAM
     Route: 042
     Dates: start: 20250924, end: 20250924
  28. NEFOPAM [Suspect]
     Active Substance: NEFOPAM
     Dosage: 20 MILLIGRAM
     Dates: start: 20250924, end: 20250924
  29. METRONIDAZOLE [Suspect]
     Active Substance: METRONIDAZOLE
     Indication: Antibiotic prophylaxis
     Dosage: 500 MILLIGRAM, 1 DOSE ONLY
     Dates: start: 20250924, end: 20250924
  30. METRONIDAZOLE [Suspect]
     Active Substance: METRONIDAZOLE
     Dosage: 500 MILLIGRAM, 1 DOSE ONLY
     Route: 065
     Dates: start: 20250924, end: 20250924
  31. METRONIDAZOLE [Suspect]
     Active Substance: METRONIDAZOLE
     Dosage: 500 MILLIGRAM, 1 DOSE ONLY
     Route: 065
     Dates: start: 20250924, end: 20250924
  32. METRONIDAZOLE [Suspect]
     Active Substance: METRONIDAZOLE
     Dosage: 500 MILLIGRAM, 1 DOSE ONLY
     Dates: start: 20250924, end: 20250924
  33. KETOPROFEN [Suspect]
     Active Substance: KETOPROFEN
     Indication: Procedural pain
     Dosage: 100 MILLIGRAM
     Dates: start: 20250924, end: 20250924
  34. KETOPROFEN [Suspect]
     Active Substance: KETOPROFEN
     Dosage: 100 MILLIGRAM
     Route: 042
     Dates: start: 20250924, end: 20250924
  35. KETOPROFEN [Suspect]
     Active Substance: KETOPROFEN
     Dosage: 100 MILLIGRAM
     Route: 042
     Dates: start: 20250924, end: 20250924
  36. KETOPROFEN [Suspect]
     Active Substance: KETOPROFEN
     Dosage: 100 MILLIGRAM
     Dates: start: 20250924, end: 20250924
  37. PHLOROGLUCINOL [Suspect]
     Active Substance: PHLOROGLUCINOL
     Indication: Laparotomy
     Dosage: 80 MILLIGRAM
     Dates: start: 20250924, end: 20250924
  38. PHLOROGLUCINOL [Suspect]
     Active Substance: PHLOROGLUCINOL
     Dosage: 80 MILLIGRAM
     Route: 042
     Dates: start: 20250924, end: 20250924
  39. PHLOROGLUCINOL [Suspect]
     Active Substance: PHLOROGLUCINOL
     Dosage: 80 MILLIGRAM
     Route: 042
     Dates: start: 20250924, end: 20250924
  40. PHLOROGLUCINOL [Suspect]
     Active Substance: PHLOROGLUCINOL
     Dosage: 80 MILLIGRAM
     Dates: start: 20250924, end: 20250924
  41. KETAMINE [Suspect]
     Active Substance: KETAMINE
     Indication: Anaesthesia
     Dates: start: 20250924, end: 20250924
  42. KETAMINE [Suspect]
     Active Substance: KETAMINE
     Route: 065
     Dates: start: 20250924, end: 20250924
  43. KETAMINE [Suspect]
     Active Substance: KETAMINE
     Route: 065
     Dates: start: 20250924, end: 20250924
  44. KETAMINE [Suspect]
     Active Substance: KETAMINE
     Dates: start: 20250924, end: 20250924
  45. LIDOCAINE [Suspect]
     Active Substance: LIDOCAINE
     Indication: Anaesthesia
     Dosage: 500 MILLILITER
     Dates: start: 20250924, end: 20250924
  46. LIDOCAINE [Suspect]
     Active Substance: LIDOCAINE
     Dosage: 500 MILLILITER
     Route: 042
     Dates: start: 20250924, end: 20250924
  47. LIDOCAINE [Suspect]
     Active Substance: LIDOCAINE
     Dosage: 500 MILLILITER
     Route: 042
     Dates: start: 20250924, end: 20250924
  48. LIDOCAINE [Suspect]
     Active Substance: LIDOCAINE
     Dosage: 500 MILLILITER
     Dates: start: 20250924, end: 20250924
  49. SUGAMMADEX [Suspect]
     Active Substance: SUGAMMADEX
     Indication: Laparotomy
     Dosage: 500 MILLIGRAM
     Dates: start: 20250924, end: 20250924
  50. SUGAMMADEX [Suspect]
     Active Substance: SUGAMMADEX
     Dosage: 500 MILLIGRAM
     Route: 042
     Dates: start: 20250924, end: 20250924
  51. SUGAMMADEX [Suspect]
     Active Substance: SUGAMMADEX
     Dosage: 500 MILLIGRAM
     Route: 042
     Dates: start: 20250924, end: 20250924
  52. SUGAMMADEX [Suspect]
     Active Substance: SUGAMMADEX
     Dosage: 500 MILLIGRAM
     Dates: start: 20250924, end: 20250924
  53. SODIUM CHLORIDE [Suspect]
     Active Substance: SODIUM CHLORIDE
     Indication: Laparotomy
     Dosage: NACL 0.9%
     Dates: start: 20250924, end: 20250924
  54. SODIUM CHLORIDE [Suspect]
     Active Substance: SODIUM CHLORIDE
     Dosage: NACL 0.9%
     Route: 042
     Dates: start: 20250924, end: 20250924
  55. SODIUM CHLORIDE [Suspect]
     Active Substance: SODIUM CHLORIDE
     Dosage: NACL 0.9%
     Route: 042
     Dates: start: 20250924, end: 20250924
  56. SODIUM CHLORIDE [Suspect]
     Active Substance: SODIUM CHLORIDE
     Dosage: NACL 0.9%
     Dates: start: 20250924, end: 20250924
  57. KETAMINE [Suspect]
     Active Substance: KETAMINE
     Indication: Laparotomy
     Dosage: 20 MILLIGRAM
     Dates: start: 20250924, end: 20250924
  58. KETAMINE [Suspect]
     Active Substance: KETAMINE
     Dosage: 20 MILLIGRAM
     Route: 042
     Dates: start: 20250924, end: 20250924
  59. KETAMINE [Suspect]
     Active Substance: KETAMINE
     Dosage: 20 MILLIGRAM
     Route: 042
     Dates: start: 20250924, end: 20250924
  60. KETAMINE [Suspect]
     Active Substance: KETAMINE
     Dosage: 20 MILLIGRAM
     Dates: start: 20250924, end: 20250924
  61. PERFALGAN [Suspect]
     Active Substance: ACETAMINOPHEN
     Indication: Pain
     Dosage: 1 GRAM
     Dates: start: 20250924, end: 20250924
  62. PERFALGAN [Suspect]
     Active Substance: ACETAMINOPHEN
     Dosage: 1 GRAM
     Route: 042
     Dates: start: 20250924, end: 20250924
  63. PERFALGAN [Suspect]
     Active Substance: ACETAMINOPHEN
     Dosage: 1 GRAM
     Route: 042
     Dates: start: 20250924, end: 20250924
  64. PERFALGAN [Suspect]
     Active Substance: ACETAMINOPHEN
     Dosage: 1 GRAM
     Dates: start: 20250924, end: 20250924
  65. LACTATED RINGERS SOLUTION [Suspect]
     Active Substance: CALCIUM CHLORIDE\POTASSIUM CHLORIDE\SODIUM CHLORIDE\SODIUM LACTATE
     Indication: Laparotomy
     Dosage: 500 MILLILITER
     Dates: start: 20250924, end: 20250924
  66. LACTATED RINGERS SOLUTION [Suspect]
     Active Substance: CALCIUM CHLORIDE\POTASSIUM CHLORIDE\SODIUM CHLORIDE\SODIUM LACTATE
     Dosage: 500 MILLILITER
     Route: 042
     Dates: start: 20250924, end: 20250924
  67. LACTATED RINGERS SOLUTION [Suspect]
     Active Substance: CALCIUM CHLORIDE\POTASSIUM CHLORIDE\SODIUM CHLORIDE\SODIUM LACTATE
     Dosage: 500 MILLILITER
     Route: 042
     Dates: start: 20250924, end: 20250924
  68. LACTATED RINGERS SOLUTION [Suspect]
     Active Substance: CALCIUM CHLORIDE\POTASSIUM CHLORIDE\SODIUM CHLORIDE\SODIUM LACTATE
     Dosage: 500 MILLILITER
     Dates: start: 20250924, end: 20250924
  69. RISPERIDONE [Concomitant]
     Active Substance: RISPERIDONE
     Indication: Psychiatric decompensation
     Dosage: 0.5 MILLIGRAM, QD, EVENING
  70. RISPERIDONE [Concomitant]
     Active Substance: RISPERIDONE
     Dosage: 0.5 MILLIGRAM, QD, EVENING
     Route: 048
  71. RISPERIDONE [Concomitant]
     Active Substance: RISPERIDONE
     Dosage: 0.5 MILLIGRAM, QD, EVENING
     Route: 048
  72. RISPERIDONE [Concomitant]
     Active Substance: RISPERIDONE
     Dosage: 0.5 MILLIGRAM, QD, EVENING
  73. FUROSEMIDE [Concomitant]
     Active Substance: FUROSEMIDE
     Indication: Product used for unknown indication
     Dosage: 20 MILLIGRAM, QD, MORNING
  74. FUROSEMIDE [Concomitant]
     Active Substance: FUROSEMIDE
     Dosage: 20 MILLIGRAM, QD, MORNING
     Route: 048
  75. FUROSEMIDE [Concomitant]
     Active Substance: FUROSEMIDE
     Dosage: 20 MILLIGRAM, QD, MORNING
     Route: 048
  76. FUROSEMIDE [Concomitant]
     Active Substance: FUROSEMIDE
     Dosage: 20 MILLIGRAM, QD, MORNING
  77. ESCITALOPRAM [Concomitant]
     Active Substance: ESCITALOPRAM OXALATE
     Indication: Depression
     Dosage: 5 MILLIGRAM, QD
  78. ESCITALOPRAM [Concomitant]
     Active Substance: ESCITALOPRAM OXALATE
     Dosage: 5 MILLIGRAM, QD
     Route: 048
  79. ESCITALOPRAM [Concomitant]
     Active Substance: ESCITALOPRAM OXALATE
     Dosage: 5 MILLIGRAM, QD
     Route: 048
  80. ESCITALOPRAM [Concomitant]
     Active Substance: ESCITALOPRAM OXALATE
     Dosage: 5 MILLIGRAM, QD
  81. TROPATEPINE HYDROCHLORIDE [Concomitant]
     Active Substance: TROPATEPINE HYDROCHLORIDE
     Indication: Neuroleptic-induced deficit syndrome
     Dosage: 10 MILLIGRAM, QD
  82. TROPATEPINE HYDROCHLORIDE [Concomitant]
     Active Substance: TROPATEPINE HYDROCHLORIDE
     Dosage: 10 MILLIGRAM, QD
     Route: 048
  83. TROPATEPINE HYDROCHLORIDE [Concomitant]
     Active Substance: TROPATEPINE HYDROCHLORIDE
     Dosage: 10 MILLIGRAM, QD
     Route: 048
  84. TROPATEPINE HYDROCHLORIDE [Concomitant]
     Active Substance: TROPATEPINE HYDROCHLORIDE
     Dosage: 10 MILLIGRAM, QD
  85. OLANZAPINE [Concomitant]
     Active Substance: OLANZAPINE
     Indication: Mania
     Dosage: 20MG-0-0
  86. OLANZAPINE [Concomitant]
     Active Substance: OLANZAPINE
     Dosage: 20MG-0-0
     Route: 048
  87. OLANZAPINE [Concomitant]
     Active Substance: OLANZAPINE
     Dosage: 20MG-0-0
     Route: 048
  88. OLANZAPINE [Concomitant]
     Active Substance: OLANZAPINE
     Dosage: 20MG-0-0
  89. NICOTINE [Concomitant]
     Active Substance: NICOTINE
     Indication: Ex-tobacco user
     Dosage: 1.5 MILLIGRAM
  90. NICOTINE [Concomitant]
     Active Substance: NICOTINE
     Dosage: 1.5 MILLIGRAM
     Route: 048
  91. NICOTINE [Concomitant]
     Active Substance: NICOTINE
     Dosage: 1.5 MILLIGRAM
     Route: 048
  92. NICOTINE [Concomitant]
     Active Substance: NICOTINE
     Dosage: 1.5 MILLIGRAM
  93. POLYETHYLENE GLYCOL 4000 [Concomitant]
     Active Substance: POLYETHYLENE GLYCOL 4000
     Indication: Constipation
     Dosage: 30 GRAM, QD
  94. POLYETHYLENE GLYCOL 4000 [Concomitant]
     Active Substance: POLYETHYLENE GLYCOL 4000
     Dosage: 30 GRAM, QD
     Route: 048
  95. POLYETHYLENE GLYCOL 4000 [Concomitant]
     Active Substance: POLYETHYLENE GLYCOL 4000
     Dosage: 30 GRAM, QD
     Route: 048
  96. POLYETHYLENE GLYCOL 4000 [Concomitant]
     Active Substance: POLYETHYLENE GLYCOL 4000
     Dosage: 30 GRAM, QD
  97. SKENAN [Concomitant]
     Active Substance: MORPHINE SULFATE
     Indication: Pain
     Dosage: 10MG-0-10MG
  98. SKENAN [Concomitant]
     Active Substance: MORPHINE SULFATE
     Dosage: 10MG-0-10MG
     Route: 048
  99. SKENAN [Concomitant]
     Active Substance: MORPHINE SULFATE
     Dosage: 10MG-0-10MG
     Route: 048
  100. SKENAN [Concomitant]
     Active Substance: MORPHINE SULFATE
     Dosage: 10MG-0-10MG
  101. MORPHINE SULFATE [Concomitant]
     Active Substance: MORPHINE SULFATE
     Indication: Pain
     Dosage: 5 MILLIGRAM
  102. MORPHINE SULFATE [Concomitant]
     Active Substance: MORPHINE SULFATE
     Dosage: 5 MILLIGRAM
     Route: 048
  103. MORPHINE SULFATE [Concomitant]
     Active Substance: MORPHINE SULFATE
     Dosage: 5 MILLIGRAM
     Route: 048
  104. MORPHINE SULFATE [Concomitant]
     Active Substance: MORPHINE SULFATE
     Dosage: 5 MILLIGRAM
  105. LIDOCAINE [Concomitant]
     Active Substance: LIDOCAINE
     Indication: Pain
     Dosage: 1 DOSAGE FORM
  106. LIDOCAINE [Concomitant]
     Active Substance: LIDOCAINE
     Dosage: 1 DOSAGE FORM
     Route: 003
  107. LIDOCAINE [Concomitant]
     Active Substance: LIDOCAINE
     Dosage: 1 DOSAGE FORM
     Route: 003
  108. LIDOCAINE [Concomitant]
     Active Substance: LIDOCAINE
     Dosage: 1 DOSAGE FORM
  109. ACETAMINOPHEN [Concomitant]
     Active Substance: ACETAMINOPHEN
     Indication: Pain
     Dosage: 1 GRAM
  110. ACETAMINOPHEN [Concomitant]
     Active Substance: ACETAMINOPHEN
     Dosage: 1 GRAM
     Route: 048
  111. ACETAMINOPHEN [Concomitant]
     Active Substance: ACETAMINOPHEN
     Dosage: 1 GRAM
     Route: 048
  112. ACETAMINOPHEN [Concomitant]
     Active Substance: ACETAMINOPHEN
     Dosage: 1 GRAM

REACTIONS (1)
  - Skin reaction [Recovered/Resolved]

NARRATIVE: CASE EVENT DATE: 20250925
